FAERS Safety Report 9130033 (Version 1)
Quarter: 2013Q1

REPORT INFORMATION
  Report Type: Spontaneous
  Country: US (occurrence: US)
  Receive Date: 20130228
  Receipt Date: 20130228
  Transmission Date: 20140127
  Serious: Yes (Death)
  Sender: FDA-Public Use
  Company Number: US-ASTRAZENECA-2012SE96180

PATIENT
  Age: 28992 Day
  Sex: Female

DRUGS (4)
  1. FASLODEX [Suspect]
     Route: 030
     Dates: start: 20121008, end: 20121210
  2. BENICAR [Concomitant]
  3. LIPITOR [Concomitant]
  4. SYNTHROID [Concomitant]

REACTIONS (6)
  - Metastases to liver [Fatal]
  - Liver function test abnormal [Unknown]
  - Abdominal pain [Unknown]
  - Nausea [Unknown]
  - Vomiting [Unknown]
  - Diarrhoea [Unknown]
